FAERS Safety Report 7777740-X (Version None)
Quarter: 2011Q3

REPORT INFORMATION
  Report Type: 
  Country: None (occurrence: None)
  Receive Date: 20110926
  Receipt Date: 20110916
  Transmission Date: 20111222
  Serious: Yes (Hospitalization, Other)
  Sender: FDA-Public Use
  Company Number: US-GENZYME-CERZ-1002251

PATIENT
  Sex: Male
  Weight: 72.5 kg

DRUGS (1)
  1. CEREZYME [Suspect]
     Indication: GAUCHER'S DISEASE
     Dosage: 121 U/KG, Q2W
     Route: 042
     Dates: start: 20091001

REACTIONS (2)
  - HIP FRACTURE [None]
  - FALL [None]
